FAERS Safety Report 19624430 (Version 1)
Quarter: 2021Q3

REPORT INFORMATION
  Report Type: Spontaneous
  Country: FR (occurrence: FR)
  Receive Date: 20210728
  Receipt Date: 20210728
  Transmission Date: 20211014
  Serious: Yes (Death)
  Sender: FDA-Public Use
  Company Number: FR-TEVA-2021-FR-1935012

PATIENT
  Age: 87 Year
  Sex: Female

DRUGS (10)
  1. AMIODARONE [Suspect]
     Active Substance: AMIODARONE
     Indication: ATRIAL FIBRILLATION
     Dosage: 1DF
     Route: 048
     Dates: start: 20201111
  2. COVERAM [Concomitant]
     Active Substance: AMLODIPINE\PERINDOPRIL
  3. LANZOR [Concomitant]
     Active Substance: LANSOPRAZOLE
  4. ASPIRINE PROTECT 100 MG, COMPRIME GASTRO?RESISTANT [Concomitant]
     Active Substance: ASPIRIN
  5. VAXZEVRIA [Suspect]
     Active Substance: AZD-1222
     Indication: COVID-19 IMMUNISATION
     Dosage: 1DF
     Route: 030
     Dates: start: 20210616, end: 20210616
  6. ELIQUIS [Concomitant]
     Active Substance: APIXABAN
  7. LASILIX [Concomitant]
     Active Substance: FUROSEMIDE
  8. TAHOR [Concomitant]
     Active Substance: ATORVASTATIN CALCIUM
  9. JANUVIA [Concomitant]
     Active Substance: SITAGLIPTIN PHOSPHATE
  10. NEBIVOLOL. [Concomitant]
     Active Substance: NEBIVOLOL

REACTIONS (1)
  - Lung disorder [Fatal]

NARRATIVE: CASE EVENT DATE: 20210624
